FAERS Safety Report 23629819 (Version 1)
Quarter: 2024Q1

REPORT INFORMATION
  Report Type: Spontaneous
  Country: DK (occurrence: DK)
  Receive Date: 20240314
  Receipt Date: 20240314
  Transmission Date: 20240410
  Serious: Yes (Death, Congenital Anomaly)
  Sender: FDA-Public Use
  Company Number: None

PATIENT

DRUGS (2)
  1. ALPHAGAN P [Suspect]
     Active Substance: BRIMONIDINE TARTRATE
     Indication: Maternal exposure timing unspecified
  2. AZOPT [Suspect]
     Active Substance: BRINZOLAMIDE
     Indication: Maternal exposure timing unspecified

REACTIONS (2)
  - Hypertelorism [Fatal]
  - Foetal exposure during pregnancy [Unknown]
